FAERS Safety Report 7772793-7 (Version None)
Quarter: 2011Q3

REPORT INFORMATION
  Report Type: 
  Country: None (occurrence: None)
  Receive Date: 20110922
  Receipt Date: 20100418
  Transmission Date: 20111222
  Serious: Yes (Other)
  Sender: FDA-Public Use
  Company Number: US-ASTRAZENECA-2009UW19259

PATIENT
  Age: 405 Month
  Sex: Female
  Weight: 90.7 kg

DRUGS (10)
  1. ATIVAN [Concomitant]
     Route: 048
     Dates: start: 20071201
  2. DIOVAN [Concomitant]
     Route: 048
     Dates: start: 20071201
  3. SEROQUEL [Suspect]
     Route: 048
     Dates: start: 20041223
  4. AMBIEN [Concomitant]
     Route: 048
     Dates: start: 20071201
  5. GEODON [Concomitant]
     Dates: start: 20071201
  6. ZYPREXA [Concomitant]
     Dates: start: 20070101
  7. ALPRAZOLAM [Concomitant]
     Dates: start: 20041201
  8. MORPHINE SULFATE [Concomitant]
     Indication: PAIN
     Dosage: 5-10 MG Q3 H P.R.N.
     Dates: start: 20071201
  9. SEROQUEL [Suspect]
     Indication: BIPOLAR DISORDER
     Dosage: 600-1200 MG
     Route: 048
     Dates: start: 20020901, end: 20071201
  10. ABILIFY [Concomitant]
     Dates: start: 20071201

REACTIONS (7)
  - HYPOGLYCAEMIA [None]
  - EMOTIONAL DISTRESS [None]
  - PNEUMONIA [None]
  - BLOOD TRIGLYCERIDES INCREASED [None]
  - PANCREATITIS ACUTE [None]
  - OBESITY [None]
  - TYPE 2 DIABETES MELLITUS [None]
